FAERS Safety Report 24938155 (Version 3)
Quarter: 2025Q1

REPORT INFORMATION
  Report Type: Report from Study
  Country: US (occurrence: US)
  Receive Date: 20250206
  Receipt Date: 20250217
  Transmission Date: 20250409
  Serious: Yes (Hospitalization)
  Sender: UCB
  Company Number: US-UCBSA-2024067605

PATIENT
  Age: 9 Year
  Sex: Male
  Weight: 27.3 kg

DRUGS (3)
  1. FINTEPLA [Suspect]
     Active Substance: FENFLURAMINE
     Indication: Epilepsy
     Dates: start: 202211
  2. FINTEPLA [Suspect]
     Active Substance: FENFLURAMINE
     Dosage: 3 MILLILITER, 2X/DAY (BID)
     Dates: start: 20230126
  3. FINTEPLA [Suspect]
     Active Substance: FENFLURAMINE
     Dosage: 3 MILLILITER, 2X/DAY (BID)

REACTIONS (3)
  - Vomiting [Recovered/Resolved]
  - Constipation [Recovered/Resolved]
  - Weight fluctuation [Recovered/Resolved]

NARRATIVE: CASE EVENT DATE: 20241206
